FAERS Safety Report 18524385 (Version 2)
Quarter: 2021Q1

REPORT INFORMATION
  Report Type: Spontaneous
  Country: CA (occurrence: CA)
  Receive Date: 20201119
  Receipt Date: 20210105
  Transmission Date: 20210419
  Serious: Yes (Other)
  Sender: FDA-Public Use
  Company Number: CA-TEVA-2020-CA-1848903

PATIENT
  Age: 35 Year
  Sex: Male

DRUGS (2)
  1. IMATINIB. [Suspect]
     Active Substance: IMATINIB MESYLATE
     Indication: MYELOPROLIFERATIVE NEOPLASM
  2. IMATINIB. [Suspect]
     Active Substance: IMATINIB MESYLATE
     Indication: HYPEREOSINOPHILIC SYNDROME
     Dosage: 400 MILLIGRAM DAILY; LOW?DOSE
     Route: 065

REACTIONS (4)
  - Optic neuritis [Recovered/Resolved]
  - Demyelination [Recovered/Resolved]
  - Blindness [Recovered/Resolved]
  - Myelitis transverse [Recovered/Resolved]
